FAERS Safety Report 15547441 (Version 5)
Quarter: 2018Q4

REPORT INFORMATION
  Report Type: Report from Study
  Country: US (occurrence: US)
  Receive Date: 20181024
  Receipt Date: 20181128
  Transmission Date: 20190205
  Serious: Yes (Hospitalization, Other)
  Sender: FDA-Public Use
  Company Number: US-GILEAD-2018-0366712

PATIENT
  Age: 38 Year
  Sex: Female

DRUGS (4)
  1. ADCIRCA [Concomitant]
     Active Substance: TADALAFIL
  2. AMBRISENTAN [Suspect]
     Active Substance: AMBRISENTAN
     Indication: PRODUCT USED FOR UNKNOWN INDICATION
     Dosage: 10 MG, QD
     Route: 065
     Dates: start: 20120705
  3. OPSUMIT [Concomitant]
     Active Substance: MACITENTAN
  4. REMODULIN [Concomitant]
     Active Substance: TREPROSTINIL

REACTIONS (9)
  - Dyspnoea [Unknown]
  - Renal disorder [Unknown]
  - Gastroenteritis viral [Unknown]
  - Weight decreased [Unknown]
  - Unevaluable event [Unknown]
  - Vomiting [Unknown]
  - Haematemesis [Unknown]
  - Cardiac failure [Unknown]
  - Syncope [Unknown]

NARRATIVE: CASE EVENT DATE: 20181011
